FAERS Safety Report 6149531-7 (Version None)
Quarter: 2009Q2

REPORT INFORMATION
  Report Type: 
  Country: None (occurrence: None)
  Receive Date: 20090409
  Receipt Date: 20090406
  Transmission Date: 20091009
  Serious: Yes (Hospitalization)
  Sender: FDA-Public Use
  Company Number: NO-BAYER-200913822GPV

PATIENT
  Age: 65 Year
  Sex: Male

DRUGS (9)
  1. CAMPATH [Suspect]
     Indication: CHRONIC LYMPHOCYTIC LEUKAEMIA
     Dosage: CYCLE 6
     Route: 058
     Dates: start: 20081106, end: 20081108
  2. FLUDARABINE [Suspect]
     Indication: CHRONIC LYMPHOCYTIC LEUKAEMIA
     Dosage: CYCLE 6
     Route: 048
     Dates: start: 20081106, end: 20081108
  3. CYCLOPHOSPHAMIDE [Suspect]
     Indication: CHRONIC LYMPHOCYTIC LEUKAEMIA
     Dosage: CYCLE 6
     Route: 048
     Dates: start: 20081106, end: 20081108
  4. ACETYLSALICYLIC ACID SRT [Concomitant]
     Indication: CORONARY ARTERY DISEASE
     Route: 048
  5. SIMVASTATIN [Concomitant]
     Indication: CORONARY ARTERY DISEASE
     Route: 048
  6. METOPROLOL [Concomitant]
     Indication: CORONARY ARTERY DISEASE
     Dosage: SLOW RELEASE, THERAPEUTIC DOSE INCREASE
     Route: 048
     Dates: start: 20081221
  7. METOPROLOL [Concomitant]
     Dosage: SLOW RELEASE
     Route: 048
  8. TRIMETOPRIM-SULPHAMETOXAZOL [Concomitant]
     Indication: INFECTION PROPHYLAXIS
     Route: 048
  9. VALCIKLOVIR [Concomitant]
     Indication: ANTIVIRAL PROPHYLAXIS
     Dosage: TOTAL DAILY DOSE: 1000 MG
     Route: 048

REACTIONS (1)
  - CHEST PAIN [None]
